FAERS Safety Report 17929073 (Version 1)
Quarter: 2020Q2

REPORT INFORMATION
  Report Type: Spontaneous
  Country: US (occurrence: US)
  Receive Date: 20200622
  Receipt Date: 20200622
  Transmission Date: 20200714
  Serious: Yes (Hospitalization, Other)
  Sender: FDA-Public Use
  Company Number: None

PATIENT
  Age: 30 Year
  Sex: Female

DRUGS (1)
  1. DEFERASIROX 90MG [Suspect]
     Active Substance: DEFERASIROX
     Indication: MYELODYSPLASTIC SYNDROME
     Route: 048
     Dates: start: 20200327

REACTIONS (4)
  - Pancreatic failure [None]
  - Pneumonia [None]
  - Renal failure [None]
  - Dialysis [None]

NARRATIVE: CASE EVENT DATE: 20200606
